FAERS Safety Report 12651329 (Version 1)
Quarter: 2016Q3

REPORT INFORMATION
  Report Type: Spontaneous
  Country: US (occurrence: US)
  Receive Date: 20160815
  Receipt Date: 20160815
  Transmission Date: 20161109
  Serious: No
  Sender: FDA-Public Use
  Company Number: US-TEVA-681961USA

PATIENT
  Age: 7 Decade
  Sex: Female

DRUGS (1)
  1. SYNRIBO [Suspect]
     Active Substance: OMACETAXINE MEPESUCCINATE
     Indication: CHRONIC MYELOID LEUKAEMIA
     Dosage: 2XPER MONTH IN DR OFFICE
     Route: 065
     Dates: start: 20160728, end: 20160729

REACTIONS (2)
  - Injection site pruritus [Unknown]
  - Injection site rash [Unknown]
